FAERS Safety Report 4894916-X (Version None)
Quarter: 2006Q1

REPORT INFORMATION
  Report Type: 
  Country: None (occurrence: None)
  Receive Date: 20060130
  Receipt Date: 20050304
  Transmission Date: 20060701
  Serious: No
  Sender: FDA-Public Use
  Company Number: US-BRISTOL-MYERS SQUIBB COMPANY-12886057

PATIENT
  Age: 74 Year
  Sex: Male
  Weight: 82 kg

DRUGS (9)
  1. METFORMIN HCL [Suspect]
     Indication: DIABETES MELLITUS NON-INSULIN-DEPENDENT
     Route: 048
  2. GLUCOPHAGE [Suspect]
     Indication: DIABETES MELLITUS NON-INSULIN-DEPENDENT
  3. OCUVITE [Concomitant]
  4. FLOMAX [Concomitant]
  5. XALATAN [Concomitant]
  6. COSOPT [Concomitant]
  7. ASPIRIN [Concomitant]
  8. TYLENOL ARTHRITIS [Concomitant]
  9. VITAMINS [Concomitant]

REACTIONS (1)
  - DIARRHOEA [None]
